FAERS Safety Report 9860956 (Version 1)
Quarter: 2014Q1

REPORT INFORMATION
  Report Type: Spontaneous
  Country: US (occurrence: None)
  Receive Date: 20140131
  Receipt Date: 20140131
  Transmission Date: 20141002
  Serious: Yes (Disabling)
  Sender: FDA-Public Use
  Company Number: None

PATIENT
  Age: 21 Year
  Sex: Male
  Weight: 83.92 kg

DRUGS (1)
  1. MIRTAZAPINE [Suspect]
     Indication: SLEEP DISORDER
     Route: 048
     Dates: start: 20131118, end: 20131121

REACTIONS (9)
  - Confusional state [None]
  - Fatigue [None]
  - Irritability [None]
  - Feeling abnormal [None]
  - Dry mouth [None]
  - Abnormal dreams [None]
  - Feeling abnormal [None]
  - Product substitution issue [None]
  - Mental disorder [None]
